FAERS Safety Report 6258874-8 (Version None)
Quarter: 2009Q3

REPORT INFORMATION
  Report Type: 
  Country: None (occurrence: None)
  Receive Date: 20090702
  Receipt Date: 20090625
  Transmission Date: 20100115
  Serious: Yes (Hospitalization)
  Sender: FDA-Public Use
  Company Number: CERZ-1000684

PATIENT
  Age: 3 Year
  Sex: Female
  Weight: 14 kg

DRUGS (7)
  1. CEREZYME [Suspect]
     Indication: GAUCHER'S DISEASE
     Dosage: 1400 U, Q2W, INTRAVENOUS
     Route: 042
     Dates: start: 20071129
  2. FERROUS SULFATE TAB [Concomitant]
  3. TYENOL (PARACETAMOL) [Concomitant]
  4. BENADRYL [Concomitant]
  5. SINGULAIR [Concomitant]
  6. NASONEX (MOMETASONE) [Concomitant]
  7. ALBUTEROL [Concomitant]

REACTIONS (4)
  - ADENOIDAL HYPERTROPHY [None]
  - DYSPHAGIA [None]
  - SLEEP APNOEA SYNDROME [None]
  - TONSILLAR HYPERTROPHY [None]
